FAERS Safety Report 25521355 (Version 5)
Quarter: 2025Q3

REPORT INFORMATION
  Report Type: Spontaneous
  Country: US (occurrence: US)
  Receive Date: 20250705
  Receipt Date: 20250922
  Transmission Date: 20251021
  Serious: No
  Sender: TRAVERE THERAPEUTICS
  Company Number: US-TRAVERE-2025TVT00910

PATIENT
  Age: 50 Year
  Sex: Female

DRUGS (2)
  1. FILSPARI [Suspect]
     Active Substance: SPARSENTAN
     Indication: IgA nephropathy
     Route: 048
     Dates: start: 20250607
  2. FILSPARI [Suspect]
     Active Substance: SPARSENTAN
     Indication: Proteinuria
     Route: 048
     Dates: start: 202506

REACTIONS (10)
  - Fatigue [None]
  - Pain [Unknown]
  - Chills [Unknown]
  - Feeling cold [None]
  - Asthenia [None]
  - Dizziness [Unknown]
  - Joint swelling [Unknown]
  - Arthralgia [None]
  - Pain in extremity [None]
  - Inflammation [Unknown]

NARRATIVE: CASE EVENT DATE: 20250607
